FAERS Safety Report 20407999 (Version 1)
Quarter: 2022Q1

REPORT INFORMATION
  Report Type: Report from Study
  Country: GB (occurrence: GB)
  Receive Date: 20220201
  Receipt Date: 20220201
  Transmission Date: 20220423
  Serious: Yes (Other)
  Sender: FDA-Public Use
  Company Number: GB-JNJFOC-20220149781

PATIENT

DRUGS (3)
  1. BORTEZOMIB [Suspect]
     Active Substance: BORTEZOMIB
     Indication: Plasma cell myeloma
     Dosage: 1.3 MILLIGRAM/SQ. METER
     Route: 058
  2. DEXAMETHASONE [Suspect]
     Active Substance: DEXAMETHASONE
     Indication: Plasma cell myeloma
     Dosage: 20 MILLIGRAM
     Route: 065
  3. CYCLOPHOSPHAMIDE [Suspect]
     Active Substance: CYCLOPHOSPHAMIDE
     Indication: Plasma cell myeloma
     Dosage: 500 MILLIGRAM
     Route: 048

REACTIONS (37)
  - Neutropenia [Unknown]
  - Thrombocytopenia [Unknown]
  - Neuropathy peripheral [Unknown]
  - Acute kidney injury [Unknown]
  - Drug ineffective [Unknown]
  - Anaemia [Unknown]
  - Infection [Unknown]
  - Diarrhoea [Unknown]
  - Decreased appetite [Unknown]
  - Pneumonitis [Unknown]
  - Fatigue [Unknown]
  - Atrial fibrillation [Unknown]
  - Syncope [Unknown]
  - Psychotic disorder [Unknown]
  - Inappropriate antidiuretic hormone secretion [Unknown]
  - Cushing^s syndrome [Unknown]
  - Lymphopenia [Unknown]
  - Constipation [Unknown]
  - Nausea [Unknown]
  - Abdominal pain [Unknown]
  - Gastritis [Unknown]
  - Mucosal inflammation [Unknown]
  - Agitation [Unknown]
  - Confusional state [Unknown]
  - Insomnia [Unknown]
  - Depression [Unknown]
  - Hypotension [Unknown]
  - Chest pain [Unknown]
  - Hyperglycaemia [Unknown]
  - Osteoporosis [Unknown]
  - Synovitis [Unknown]
  - Oedema peripheral [Unknown]
  - Hypersensitivity [Unknown]
  - Rash [Unknown]
  - Haematoma [Unknown]
  - Vision blurred [Unknown]
  - Hypoacusis [Unknown]
